FAERS Safety Report 6931908-0 (Version None)
Quarter: 2010Q3

REPORT INFORMATION
  Report Type: 
  Country: None (occurrence: None)
  Receive Date: 20100813
  Receipt Date: 20100622
  Transmission Date: 20110219
  Serious: No
  Sender: FDA-Public Use
  Company Number: 1000014680

PATIENT
  Age: 51 Year
  Sex: Female

DRUGS (8)
  1. SAVELLA [Suspect]
     Dosage: 12.5 MG 912.5 MG,1 IN 1 D), ORAL; 25 MG 912.5 MG,2 IN 1 D), ORAL; 50 MG (25 MG,2 IN 1 D), OAL
     Route: 048
     Dates: start: 20100427, end: 20100427
  2. SAVELLA [Suspect]
     Dosage: 12.5 MG 912.5 MG,1 IN 1 D), ORAL; 25 MG 912.5 MG,2 IN 1 D), ORAL; 50 MG (25 MG,2 IN 1 D), OAL
     Route: 048
     Dates: start: 20100428, end: 20100429
  3. SAVELLA [Suspect]
     Dosage: 12.5 MG 912.5 MG,1 IN 1 D), ORAL; 25 MG 912.5 MG,2 IN 1 D), ORAL; 50 MG (25 MG,2 IN 1 D), OAL
     Route: 048
     Dates: start: 20100430, end: 20100503
  4. SAVELLA [Suspect]
     Indication: MERALGIA PARAESTHETICA
     Dosage: 100 MG (50 MG,2 IN 1 D), ORAL
     Route: 048
     Dates: start: 20100504
  5. GABAPENTIN [Concomitant]
  6. ZETIA [Concomitant]
  7. ALBUTEROL [Concomitant]
  8. SINGULAIR [Concomitant]

REACTIONS (3)
  - AGITATION [None]
  - ANGER [None]
  - IRRITABILITY [None]
